FAERS Safety Report 8479652-5 (Version None)
Quarter: 2012Q2

REPORT INFORMATION
  Report Type: 
  Country: None (occurrence: None)
  Receive Date: 20120629
  Receipt Date: 20120628
  Transmission Date: 20120825
  Serious: Yes (Life-Threatening, Hospitalization)
  Sender: FDA-Public Use
  Company Number: CH-BAYER-2012-063695

PATIENT
  Age: 61 Year
  Sex: Female

DRUGS (9)
  1. MYSOLINE [Suspect]
     Indication: PARKINSON'S DISEASE
     Dosage: 500 MG, PER 8 HOURS
     Route: 048
     Dates: start: 20110801, end: 20120228
  2. CIPROFLOXACIN HCL [Suspect]
     Dosage: 200 MG, QD
     Route: 041
     Dates: end: 20120314
  3. CEFTRIAXON [Suspect]
     Dosage: UNK
     Route: 041
     Dates: start: 20120303, end: 20120301
  4. PROPRANOLOL HELVEPHARM [Concomitant]
     Dosage: 40 MG, TID
     Route: 048
     Dates: start: 20110101, end: 20120303
  5. LISINOPRIL AND HYDROCHLOROTHIAZIDE [Concomitant]
     Dosage: UNK
     Route: 048
  6. PANTOPRAZOLE [Concomitant]
     Dosage: 40 MG, QD
     Route: 048
     Dates: start: 20120304, end: 20120319
  7. FLAGYL [Concomitant]
     Dosage: 500 MG, TID
     Route: 048
     Dates: start: 20120301, end: 20120314
  8. ASPIRIN [Concomitant]
     Dosage: 100 MG, QD
     Route: 048
  9. MEROPENEM [Suspect]
     Dosage: UNK
     Route: 041
     Dates: start: 20120301, end: 20120301

REACTIONS (6)
  - DERMATITIS BULLOUS [None]
  - TUBULOINTERSTITIAL NEPHRITIS [None]
  - MIXED LIVER INJURY [None]
  - DRUG RASH WITH EOSINOPHILIA AND SYSTEMIC SYMPTOMS [None]
  - PYREXIA [None]
  - RENAL FAILURE ACUTE [None]
